FAERS Safety Report 8483362-8 (Version None)
Quarter: 2012Q3

REPORT INFORMATION
  Report Type: 
  Country: None (occurrence: None)
  Receive Date: 20120702
  Receipt Date: 20120618
  Transmission Date: 20120928
  Serious: Yes (Other)
  Sender: FDA-Public Use
  Company Number: US-ENDO PHARMACEUTICALS INC.-OPCR20120064

PATIENT
  Sex: Male
  Weight: 147.55 kg

DRUGS (2)
  1. OPANA ER [Suspect]
     Indication: PAIN
     Route: 065
     Dates: start: 20120401
  2. OPANA ER [Suspect]
     Indication: CRUSH INJURY
     Route: 065
     Dates: start: 20120328, end: 20120401

REACTIONS (5)
  - INTENTIONAL DRUG MISUSE [None]
  - MEDICATION RESIDUE [None]
  - DRUG INEFFECTIVE [None]
  - MUSCLE SPASMS [None]
  - HEADACHE [None]
